FAERS Safety Report 4473883-7 (Version None)
Quarter: 2004Q4

REPORT INFORMATION
  Report Type: 
  Country: None (occurrence: None)
  Receive Date: 20041008
  Receipt Date: 20041008
  Transmission Date: 20050328
  Serious: Yes (Life-Threatening)
  Sender: FDA-Public Use
  Company Number: None

PATIENT

DRUGS (1)
  1. PROZAC [Suspect]
     Dosage: 120 MG DAILY

REACTIONS (9)
  - DECREASED APPETITE [None]
  - FEELING ABNORMAL [None]
  - HYPERHIDROSIS [None]
  - MORBID THOUGHTS [None]
  - PRURITUS [None]
  - RASH [None]
  - SKIN ULCER [None]
  - TREMOR [None]
  - URTICARIA [None]
